FAERS Safety Report 25926209 (Version 1)
Quarter: 2025Q4

REPORT INFORMATION
  Report Type: Report from Study
  Country: US (occurrence: US)
  Receive Date: 20251015
  Receipt Date: 20251015
  Transmission Date: 20260118
  Serious: Yes (Death)
  Sender: NOVARTIS
  Company Number: US-002147023-NVSC2025US160005

PATIENT
  Sex: Female

DRUGS (1)
  1. KISQALI [Suspect]
     Active Substance: RIBOCICLIB SUCCINATE
     Indication: Human epidermal growth factor receptor positive
     Dosage: 600 MG, TID
     Route: 048
     Dates: start: 20241224, end: 20250301

REACTIONS (1)
  - Death [Fatal]
